FAERS Safety Report 9630145 (Version 1)
Quarter: 2013Q4

REPORT INFORMATION
  Report Type: Spontaneous
  Country: US (occurrence: US)
  Receive Date: 20131017
  Receipt Date: 20131017
  Transmission Date: 20140711
  Serious: No
  Sender: FDA-Public Use
  Company Number: US-009507513-1310USA004714

PATIENT
  Age: 17 Year
  Sex: Female

DRUGS (12)
  1. MAXALT [Suspect]
     Indication: MIGRAINE
     Route: 048
  2. MAXALT [Suspect]
     Indication: ABDOMINAL PAIN
  3. MAXALT [Suspect]
     Indication: VOMITING
  4. MAXALT [Suspect]
     Indication: CONSTIPATION
  5. VERAPAMIL [Concomitant]
     Indication: MIGRAINE
  6. VERAPAMIL [Concomitant]
     Indication: ABDOMINAL PAIN
  7. VERAPAMIL [Concomitant]
     Indication: VOMITING
  8. VERAPAMIL [Concomitant]
     Indication: CONSTIPATION
  9. PERIACTIN TABLETS [Concomitant]
     Indication: MIGRAINE
     Route: 048
  10. PERIACTIN TABLETS [Concomitant]
     Indication: ABDOMINAL PAIN
  11. PERIACTIN TABLETS [Concomitant]
     Indication: VOMITING
  12. PERIACTIN TABLETS [Concomitant]
     Indication: CONSTIPATION

REACTIONS (1)
  - Drug ineffective [Unknown]
